FAERS Safety Report 5387195-0 (Version None)
Quarter: 2007Q3

REPORT INFORMATION
  Report Type: 
  Country: None (occurrence: None)
  Receive Date: 20070711
  Receipt Date: 20070629
  Transmission Date: 20080115
  Serious: Yes (Other)
  Sender: FDA-Public Use
  Company Number: 2007325605

PATIENT
  Sex: Female

DRUGS (1)
  1. BENADRYL [Suspect]
     Indication: RASH PRURITIC
     Dosage: ONE PILL DAILY (1 IN 1 D), ORAL
     Route: 048

REACTIONS (1)
  - VISION BLURRED [None]
